FAERS Safety Report 20365745 (Version 2)
Quarter: 2022Q1

REPORT INFORMATION
  Report Type: Spontaneous
  Country: AR (occurrence: AR)
  Receive Date: 20220123
  Receipt Date: 20220203
  Transmission Date: 20220423
  Serious: No
  Sender: FDA-Public Use
  Company Number: AR-UCBSA-2022001736

PATIENT
  Age: 67 Year
  Sex: Male

DRUGS (5)
  1. NEUPRO [Suspect]
     Active Substance: ROTIGOTINE
     Indication: Parkinson^s disease
     Dosage: 4 MILLIGRAM
  2. NEUPRO [Suspect]
     Active Substance: ROTIGOTINE
     Dosage: 6 MILLIGRAM
  3. NEUPRO [Suspect]
     Active Substance: ROTIGOTINE
     Dosage: 6 MILLIGRAM
  4. NEUPRO [Suspect]
     Active Substance: ROTIGOTINE
     Dosage: 8 MILLIGRAM
  5. NEUPRO [Suspect]
     Active Substance: ROTIGOTINE
     Dosage: 8 MILLIGRAM, ONCE DAILY (QD)
     Route: 062
     Dates: start: 20211116

REACTIONS (1)
  - Product adhesion issue [Unknown]

NARRATIVE: CASE EVENT DATE: 20220101
